FAERS Safety Report 6825957-0 (Version None)
Quarter: 2010Q3

REPORT INFORMATION
  Report Type: 
  Country: None (occurrence: None)
  Receive Date: 20100706
  Receipt Date: 20100317
  Transmission Date: 20110219
  Serious: Yes (Other)
  Sender: FDA-Public Use
  Company Number: 2010034887

PATIENT
  Age: 48 Year
  Sex: Male
  Weight: 82 kg

DRUGS (2)
  1. SERTRALINE HCL (SERTRALINE HCL) UNKNOWN [Suspect]
     Indication: ANXIETY
     Dosage: 200 MG DAILY, ORAL
     Route: 048
     Dates: start: 20090101
  2. SERTRALINE HCL (SERTRALINE HCL) UNKNOWN [Suspect]
     Indication: DEPRESSION
     Dosage: 200 MG DAILY, ORAL
     Route: 048
     Dates: start: 20090101

REACTIONS (2)
  - DRUG INEFFECTIVE [None]
  - SUICIDAL IDEATION [None]
